FAERS Safety Report 10998713 (Version 5)
Quarter: 2015Q3

REPORT INFORMATION
  Report Type: Report from Study
  Country: JP (occurrence: JP)
  Receive Date: 20150408
  Receipt Date: 20150708
  Transmission Date: 20151125
  Serious: Yes (Hospitalization)
  Sender: FDA-Public Use
  Company Number: JP-ROCHE-1561064

PATIENT
  Age: 61 Year
  Sex: Female
  Weight: 59 kg

DRUGS (37)
  1. DECADRON [Concomitant]
     Active Substance: DEXAMETHASONE
     Indication: PROPHYLAXIS
     Route: 048
     Dates: start: 20150219, end: 20150221
  2. SENNOSIDE [Concomitant]
     Active Substance: SENNOSIDES
     Indication: CONSTIPATION
     Dosage: DOSAGE UNCERTAIN.
     Route: 048
  3. CHLOR-TRIMETON [Concomitant]
     Active Substance: CHLORPHENIRAMINE MALEATE
     Dosage: DOSAGE IS UNCERTAIN.
     Route: 041
     Dates: start: 20150127, end: 20150310
  4. SULBACILLIN (JAPAN) [Concomitant]
     Active Substance: AMPICILLIN SODIUM\SULBACTAM SODIUM
     Dosage: DOSAGE IS UNCERTAIN.
     Route: 042
     Dates: start: 20150401, end: 20150402
  5. ATORVASTATIN CALCIUM. [Concomitant]
     Active Substance: ATORVASTATIN CALCIUM
     Indication: DYSLIPIDAEMIA
     Dosage: DOSAGE UNCERTAIN.
     Route: 048
  6. PERTUZUMAB [Suspect]
     Active Substance: PERTUZUMAB
     Indication: HER-2 POSITIVE BREAST CANCER
     Route: 041
     Dates: start: 20150127, end: 20150127
  7. GRANISETRON [Concomitant]
     Active Substance: GRANISETRON
     Dosage: DOSAGE UNCERTAIN.
     Route: 041
     Dates: start: 20150127, end: 20150310
  8. PERTUZUMAB [Suspect]
     Active Substance: PERTUZUMAB
     Indication: HER-2 POSITIVE BREAST CANCER
     Dosage: MOST RECENT DOSE PRIOR TO EVENT ONSET RECEIEVD ON 10/MAR/2015
     Route: 041
     Dates: start: 20150218, end: 20150310
  9. DOCETAXEL. [Suspect]
     Active Substance: DOCETAXEL
     Indication: HER-2 POSITIVE BREAST CANCER
     Dosage: MOST RECENT DOSE PRIOR TO EVENT ONSET RECEIEVD ON 10/MAR/2015
     Route: 041
     Dates: start: 20150218, end: 20150310
  10. DECADRON [Concomitant]
     Active Substance: DEXAMETHASONE
     Indication: PROPHYLAXIS
     Route: 048
     Dates: start: 20150128, end: 20150130
  11. CALONAL [Concomitant]
     Active Substance: ACETAMINOPHEN
     Dosage: DOSAGE UNCERTAIN.
     Route: 048
     Dates: start: 20150127, end: 20150127
  12. CALONAL [Concomitant]
     Active Substance: ACETAMINOPHEN
     Dosage: DOSAGE IS UNCERTAIN.
     Route: 048
     Dates: start: 20150401, end: 20150401
  13. GASTER [Concomitant]
     Active Substance: FAMOTIDINE
     Dosage: DOSAGE IS UNCERTAIN.
     Route: 041
     Dates: start: 20150127, end: 20150310
  14. CLARITIN [Concomitant]
     Active Substance: LORATADINE
     Indication: SEASONAL ALLERGY
     Dosage: DOSAGE IS UNCERTAIN.
     Route: 048
     Dates: start: 20150317, end: 20150427
  15. LANSOPRAZOLE. [Concomitant]
     Active Substance: LANSOPRAZOLE
     Dosage: DOSAGE IS UNCERTAIN.
     Route: 048
     Dates: start: 20150409
  16. LAC-B [Concomitant]
     Active Substance: BIFIDOBACTERIUM SPP.
     Dosage: DOSAGE IS UNCERTAIN.
     Route: 048
     Dates: start: 20150203, end: 20150203
  17. TRASTUZUMAB [Suspect]
     Active Substance: TRASTUZUMAB
     Indication: HER-2 POSITIVE BREAST CANCER
     Dosage: MOST RECENT DOSE PRIOR TO EVENT ONSET RECEIEVD ON 10/MAR/2015
     Route: 041
     Dates: start: 20150218, end: 20150310
  18. AMLODIPINE BESILATE [Concomitant]
     Active Substance: AMLODIPINE BESYLATE
     Indication: HYPERTENSION
     Route: 048
     Dates: start: 20150426
  19. MONTELUKAST [Concomitant]
     Active Substance: MONTELUKAST SODIUM
     Dosage: DOSAGE IS UNCERTAIN.
     Route: 048
     Dates: start: 20150213, end: 20150316
  20. NASONEX [Concomitant]
     Active Substance: MOMETASONE FUROATE
     Indication: SEASONAL ALLERGY
     Dosage: DOSAGE IS UNCERTAIN.
     Route: 045
     Dates: start: 20150213, end: 20150427
  21. CRAVIT [Concomitant]
     Active Substance: LEVOFLOXACIN
     Indication: PYREXIA
     Route: 048
     Dates: start: 20150318, end: 20150324
  22. LOXONIN [Concomitant]
     Active Substance: LOXOPROFEN SODIUM
     Dosage: DOSAGE IS UNCERTAIN.
     Route: 048
     Dates: start: 20150224, end: 20150226
  23. MUCOSTA [Concomitant]
     Active Substance: REBAMIPIDE
     Dosage: DOSAGE IS UNCERTAIN.
     Route: 048
     Dates: start: 20150224, end: 20150226
  24. AZULENE [Concomitant]
     Active Substance: AZULENE
     Indication: STOMATITIS
     Dosage: DOSAGE IS UNCERTAIN. ?SINGLE USE
     Route: 049
     Dates: start: 20150203, end: 20150317
  25. DEXART [Concomitant]
     Active Substance: DEXAMETHASONE SODIUM PHOSPHATE
     Dosage: DOSAGE UNCERTAIN.
     Route: 065
     Dates: start: 20150127, end: 20150310
  26. CRAVIT [Concomitant]
     Active Substance: LEVOFLOXACIN
     Indication: PYREXIA
     Dosage: OTHER PURPOSES: INFECTION OF GUM
     Route: 048
     Dates: start: 20150206, end: 20150212
  27. ZEPELIN (JAPAN) [Concomitant]
     Indication: SEASONAL ALLERGY
     Dosage: DOSAGE IS UNCERTAIN.
     Route: 031
     Dates: start: 20150302, end: 20150309
  28. AZULENE [Concomitant]
     Active Substance: AZULENE
     Indication: STOMATITIS
     Dosage: DOSAGE IS UNCERTAIN. ?SINGLE USE
     Route: 049
     Dates: start: 20150210, end: 20150317
  29. KINDAVATE [Concomitant]
     Dosage: DOSAGE IS UNCERTAIN.
     Route: 003
     Dates: start: 20150203, end: 20150206
  30. DOCETAXEL. [Suspect]
     Active Substance: DOCETAXEL
     Indication: HER-2 POSITIVE BREAST CANCER
     Route: 041
     Dates: start: 20150127, end: 20150127
  31. DECADRON [Concomitant]
     Active Substance: DEXAMETHASONE
     Indication: PROPHYLAXIS
     Route: 048
     Dates: start: 20150311, end: 20150313
  32. SINGULAIR [Concomitant]
     Active Substance: MONTELUKAST SODIUM
     Indication: SEASONAL ALLERGY
     Dosage: DOSAGE IS UNCERTAIN.
     Route: 048
     Dates: start: 20150317, end: 20150408
  33. TRASTUZUMAB [Suspect]
     Active Substance: TRASTUZUMAB
     Indication: HER-2 POSITIVE BREAST CANCER
     Route: 041
     Dates: start: 20150127, end: 20150127
  34. AMLODIPINE BESILATE [Concomitant]
     Active Substance: AMLODIPINE BESYLATE
     Indication: HYPERTENSION
     Dosage: DOSAGE UNCERTAIN.
     Route: 048
     Dates: end: 20150313
  35. XYZAL [Concomitant]
     Active Substance: LEVOCETIRIZINE DIHYDROCHLORIDE
     Dosage: DOSAGE IS UNCERTAIN.
     Route: 048
     Dates: start: 20150213, end: 20150316
  36. NERISONA [Concomitant]
     Active Substance: DIFLUCORTOLONE VALERATE
     Indication: RASH
     Dosage: DOSAGE IS UNCERTAIN.
     Route: 003
     Dates: start: 20150224, end: 201504
  37. CRAVIT [Concomitant]
     Active Substance: LEVOFLOXACIN
     Indication: PYREXIA
     Dosage: DOSAGE IS UNCERTAIN.
     Route: 048
     Dates: start: 20150225, end: 20150303

REACTIONS (1)
  - Interstitial lung disease [Recovered/Resolved]

NARRATIVE: CASE EVENT DATE: 20150331
